FAERS Safety Report 8549321-1 (Version None)
Quarter: 2012Q3

REPORT INFORMATION
  Report Type: 
  Country: None (occurrence: None)
  Receive Date: 20120730
  Receipt Date: 20120720
  Transmission Date: 20120928
  Serious: Yes (Other)
  Sender: FDA-Public Use
  Company Number: US-BAYER-2012-023592

PATIENT
  Age: 25 Year
  Sex: Female

DRUGS (5)
  1. CLARITIN [Concomitant]
     Dosage: 10 MG, DAILY
     Route: 048
  2. YASMIN [Suspect]
  3. MOTRIN [Concomitant]
     Dosage: 800 MG, UNK
     Dates: start: 20090505
  4. DROSPIRENONE AND ETHINYL ESTRADIOL [Suspect]
     Dosage: UNK
     Dates: start: 20050627
  5. YAZ [Suspect]
     Dosage: UNK
     Dates: start: 20050627

REACTIONS (6)
  - EMOTIONAL DISTRESS [None]
  - DEEP VEIN THROMBOSIS [None]
  - PAIN [None]
  - ANXIETY [None]
  - INJURY [None]
  - GENERAL PHYSICAL HEALTH DETERIORATION [None]
